FAERS Safety Report 9422838 (Version 1)
Quarter: 2013Q3

REPORT INFORMATION
  Report Type: Spontaneous
  Country: US (occurrence: US)
  Receive Date: 20130726
  Receipt Date: 20130726
  Transmission Date: 20140515
  Serious: No
  Sender: FDA-Public Use
  Company Number: US-009507513-1307USA009752

PATIENT
  Age: 50 Year
  Sex: Female

DRUGS (2)
  1. METHYLPREDNISOLONE SODIUM SUCCINATE [Suspect]
     Indication: ABDOMINAL PAIN
     Dosage: UNKNOWN
     Route: 042
  2. KETAMINE HYDROCHLORIDE [Concomitant]
     Indication: ABDOMINAL PAIN
     Dosage: UNKNOWN
     Route: 042

REACTIONS (1)
  - Drug ineffective [Unknown]
